FAERS Safety Report 25931664 (Version 1)
Quarter: 2025Q4

REPORT INFORMATION
  Report Type: Spontaneous
  Country: AU (occurrence: AU)
  Receive Date: 20251016
  Receipt Date: 20251016
  Transmission Date: 20260118
  Serious: Yes (Other)
  Sender: Vantive US Healthcare
  Company Number: AU-VANTIVE-2025VAN004764

PATIENT
  Sex: Male

DRUGS (2)
  1. EXTRANEAL [Suspect]
     Active Substance: CALCIUM CHLORIDE\ICODEXTRIN\MAGNESIUM CHLORIDE\SODIUM CHLORIDE\SODIUM LACTATE
     Dosage: 1000 ML (DAY FILL)
     Route: 033
     Dates: start: 20251010
  2. DIANEAL [Suspect]
     Active Substance: CALCIUM CHLORIDE\DEXTROSE\MAGNESIUM CHLORIDE\SODIUM CHLORIDE\SODIUM LACTATE
     Dosage: (USING ON CYCLER OVERNIGHT)
     Route: 033
     Dates: start: 20251010

REACTIONS (4)
  - Ultrafiltration failure [Unknown]
  - Blood glucose increased [Unknown]
  - Neck pain [Unknown]
  - Hypertension [Unknown]

NARRATIVE: CASE EVENT DATE: 20251011
